FAERS Safety Report 9140037 (Version 1)
Quarter: 2013Q1

REPORT INFORMATION
  Report Type: Spontaneous
  Country: US (occurrence: None)
  Receive Date: 20130205
  Receipt Date: 20130205
  Transmission Date: 20140127
  Serious: Yes (Death)
  Sender: FDA-Public Use
  Company Number: DEP_00821_2013

PATIENT
  Age: 52 Year
  Sex: Female

DRUGS (5)
  1. GABAPENTIN [Suspect]
     Indication: PRODUCT USED FOR UNKNOWN INDICATION
     Dosage: DF ORAL
  2. ACETAMINOPHEN [Suspect]
     Dosage: DF ORAL
  3. SALICYLATES NOS [Suspect]
     Dosage: DF ORAL
  4. ACETAMINOPHEN W/HYDROCODONE [Suspect]
     Dosage: DF ORAL
  5. ETHANOL [Suspect]
     Route: 048

REACTIONS (2)
  - Completed suicide [None]
  - Poisoning [None]
